FAERS Safety Report 21272642 (Version 6)
Quarter: 2023Q1

REPORT INFORMATION
  Report Type: Report from Study
  Country: JP (occurrence: JP)
  Receive Date: 20220830
  Receipt Date: 20230112
  Transmission Date: 20230417
  Serious: Yes (Other)
  Sender: FDA-Public Use
  Company Number: JP-TAKEDA-2022TJP071751

PATIENT
  Age: 25 Year
  Sex: Female
  Weight: 56.9 kg

DRUGS (15)
  1. TEDUGLUTIDE [Suspect]
     Active Substance: TEDUGLUTIDE
     Indication: Short-bowel syndrome
     Dosage: 0.05 MILLIGRAM/KILOGRAM, QD
     Route: 058
     Dates: start: 20220315, end: 20221101
  2. TEDUGLUTIDE [Suspect]
     Active Substance: TEDUGLUTIDE
     Indication: Short-bowel syndrome
     Dosage: 0.05 MILLIGRAM/KILOGRAM, QD
     Route: 058
     Dates: start: 20220315, end: 20221101
  3. TEDUGLUTIDE [Suspect]
     Active Substance: TEDUGLUTIDE
     Indication: Short-bowel syndrome
     Dosage: 0.05 MILLIGRAM/KILOGRAM, QD
     Route: 058
     Dates: start: 20220315, end: 20221101
  4. TEDUGLUTIDE [Suspect]
     Active Substance: TEDUGLUTIDE
     Indication: Short-bowel syndrome
     Dosage: 0.05 MILLIGRAM/KILOGRAM, QD
     Route: 058
     Dates: start: 20220315, end: 20221101
  5. TEDUGLUTIDE [Suspect]
     Active Substance: TEDUGLUTIDE
     Dosage: UNK MILLIGRAM/KILOGRAM, QD
     Route: 065
     Dates: start: 20221201
  6. TEDUGLUTIDE [Suspect]
     Active Substance: TEDUGLUTIDE
     Dosage: UNK MILLIGRAM/KILOGRAM, QD
     Route: 065
     Dates: start: 20221201
  7. TEDUGLUTIDE [Suspect]
     Active Substance: TEDUGLUTIDE
     Dosage: UNK MILLIGRAM/KILOGRAM, QD
     Route: 065
     Dates: start: 20221201
  8. TEDUGLUTIDE [Suspect]
     Active Substance: TEDUGLUTIDE
     Dosage: UNK MILLIGRAM/KILOGRAM, QD
     Route: 065
     Dates: start: 20221201
  9. BIO-THREE [Concomitant]
     Active Substance: HERBALS
     Indication: Short-bowel syndrome
     Dosage: UNK
     Route: 065
  10. LOPERAMIDE [Concomitant]
     Active Substance: LOPERAMIDE
     Indication: Short-bowel syndrome
     Dosage: UNK
     Route: 065
  11. NEXIUM [Concomitant]
     Active Substance: ESOMEPRAZOLE MAGNESIUM
     Dosage: UNK
     Route: 065
  12. BEPOTASTINE BESYLATE [Concomitant]
     Active Substance: BEPOTASTINE BESYLATE
     Dosage: UNK
     Route: 065
  13. PRANLUKAST [Concomitant]
     Active Substance: PRANLUKAST
     Dosage: UNK
     Route: 065
  14. POLAPREZINC [Concomitant]
     Active Substance: POLAPREZINC
     Dosage: UNK
     Route: 065
  15. LOXOPROFEN SODIUM [Concomitant]
     Active Substance: LOXOPROFEN SODIUM
     Dosage: UNK
     Route: 065

REACTIONS (2)
  - Heat illness [Recovered/Resolved]
  - Abdominal pain [Recovered/Resolved]

NARRATIVE: CASE EVENT DATE: 20220614
